FAERS Safety Report 4687069-4 (Version None)
Quarter: 2005Q2

REPORT INFORMATION
  Report Type: 
  Country: None (occurrence: None)
  Receive Date: 20050607
  Receipt Date: 20050523
  Transmission Date: 20051028
  Serious: Yes (Hospitalization, Disabling, Other)
  Sender: FDA-Public Use
  Company Number: USA050598690

PATIENT
  Age: 57 Year
  Sex: Male
  Weight: 125 kg

DRUGS (3)
  1. HUMULIN N [Suspect]
     Indication: DIABETES MELLITUS
     Dates: end: 20040401
  2. HUMULIN R [Suspect]
     Indication: DIABETES MELLITUS
  3. AVANDIA [Concomitant]

REACTIONS (4)
  - BLINDNESS [None]
  - CONVULSION [None]
  - DIABETIC COMA [None]
  - DIABETIC RETINOPATHY [None]
